FAERS Safety Report 7413772 (Version 4)
Quarter: 2017Q1

REPORT INFORMATION
  Report Type: Report from Study
  Country: US (occurrence: US)
  Receive Date: 20100608
  Receipt Date: 20170330
  Transmission Date: 20170429
  Serious: Yes (Hospitalization)
  Sender: FDA-Public Use
  Company Number: US-ROCHE-707579

PATIENT
  Age: 56 Year
  Sex: Male
  Weight: 87 kg

DRUGS (18)
  1. NITROGLYCERIN. [Concomitant]
     Active Substance: NITROGLYCERIN
  2. ULTRAM [Concomitant]
     Active Substance: TRAMADOL HYDROCHLORIDE
  3. PROPRANOLOL [Concomitant]
     Active Substance: PROPRANOLOL HYDROCHLORIDE
  4. MINOCYCLINE [Concomitant]
     Active Substance: MINOCYCLINE\MINOCYCLINE HYDROCHLORIDE
  5. ASPIRIN. [Concomitant]
     Active Substance: ASPIRIN
  6. ELAVIL [Concomitant]
     Active Substance: AMITRIPTYLINE HYDROCHLORIDE
  7. ERLOTINIB [Suspect]
     Active Substance: ERLOTINIB
     Indication: HEPATOCELLULAR CARCINOMA
     Route: 048
     Dates: start: 20090402, end: 20090514
  8. BEVACIZUMAB [Suspect]
     Active Substance: BEVACIZUMAB
     Indication: HEPATOCELLULAR CARCINOMA
     Route: 042
     Dates: start: 20090402, end: 20100511
  9. COMBIVENT [Concomitant]
     Active Substance: ALBUTEROL SULFATE\IPRATROPIUM BROMIDE
  10. LISINOPRIL. [Concomitant]
     Active Substance: LISINOPRIL
     Dosage: DRUG: LISIOPRIL
     Route: 065
  11. HEPSERA [Concomitant]
     Active Substance: ADEFOVIR DIPIVOXIL
  12. PROTONIX [Concomitant]
     Active Substance: PANTOPRAZOLE SODIUM
  13. PEPCID (UNITED STATES) [Concomitant]
  14. XANAX [Concomitant]
     Active Substance: ALPRAZOLAM
  15. ERLOTINIB [Suspect]
     Active Substance: ERLOTINIB
     Route: 048
     Dates: start: 20090514, end: 20100527
  16. NEURONTIN [Concomitant]
     Active Substance: GABAPENTIN
  17. IMDUR [Concomitant]
     Active Substance: ISOSORBIDE MONONITRATE
  18. SPIRIVA [Concomitant]
     Active Substance: TIOTROPIUM BROMIDE MONOHYDRATE

REACTIONS (3)
  - Hypotension [Recovering/Resolving]
  - Tachycardia [Recovering/Resolving]
  - Atelectasis [Recovering/Resolving]

NARRATIVE: CASE EVENT DATE: 20100527
